FAERS Safety Report 8110560-5 (Version None)
Quarter: 2012Q1

REPORT INFORMATION
  Report Type: 
  Country: None (occurrence: None)
  Receive Date: 20120203
  Receipt Date: 20120123
  Transmission Date: 20120608
  Serious: Yes (Hospitalization)
  Sender: FDA-Public Use
  Company Number: JP-ACCORD-012202

PATIENT
  Age: 89 Year
  Sex: Male

DRUGS (2)
  1. METFORMIN HCL [Suspect]
  2. GLIMEPIRIDE [Suspect]

REACTIONS (3)
  - DYSARTHRIA [None]
  - HYPOGLYCAEMIA [None]
  - HEMIPARESIS [None]
